FAERS Safety Report 14683699 (Version 1)
Quarter: 2018Q1

REPORT INFORMATION
  Report Type: Spontaneous
  Country: GB (occurrence: GB)
  Receive Date: 20180327
  Receipt Date: 20180327
  Transmission Date: 20180509
  Serious: Yes (Other)
  Sender: FDA-Public Use
  Company Number: GB-BAXTER-2018BAX009106

PATIENT
  Age: 29 Year
  Sex: Female

DRUGS (2)
  1. BUPIVACAINE-CLARIS 2.5MG/ML SOLUTION FOR INJECTION [Suspect]
     Active Substance: BUPIVACAINE
     Indication: EPIDURAL ANALGESIA
     Route: 008
     Dates: start: 20170527
  2. FENTANYL. [Concomitant]
     Active Substance: FENTANYL
     Indication: EPIDURAL ANALGESIA
     Dosage: 2 MICROGRAM/ML (STANDARD AMPULE MIX)
     Route: 065

REACTIONS (3)
  - Bradycardia foetal [Unknown]
  - Inferior vena cava syndrome [Unknown]
  - Exposure during pregnancy [Not Recovered/Not Resolved]

NARRATIVE: CASE EVENT DATE: 20170527
